FAERS Safety Report 5958358-8 (Version None)
Quarter: 2008Q4

REPORT INFORMATION
  Report Type: 
  Country: None (occurrence: None)
  Receive Date: 20081117
  Receipt Date: 20081104
  Transmission Date: 20090506
  Serious: Yes (Hospitalization, Other)
  Sender: FDA-Public Use
  Company Number: 2008-02472

PATIENT
  Age: 79 Year
  Sex: Male
  Weight: 70.4 kg

DRUGS (15)
  1. VELCADE [Suspect]
     Indication: NON-SMALL CELL LUNG CANCER
     Dosage: 2 MG/M2, INTRAVENOUS
     Route: 042
     Dates: start: 20080507, end: 20080604
  2. ALIMTA [Suspect]
     Indication: NON-SMALL CELL LUNG CANCER
     Dosage: 855 MG, INTRAVENOUS
     Route: 042
     Dates: start: 20080507, end: 20080604
  3. ESCITALOPRAM [Concomitant]
  4. POTASSIUM (POTASSIUM) [Concomitant]
  5. MIDODRINE HYDROCHLORIDE [Concomitant]
  6. ACETAMINOPHEN AND OXYCODONE HCL [Concomitant]
  7. SPIRIVA [Concomitant]
  8. VITAMINS [Concomitant]
  9. ASPIRIN [Concomitant]
  10. FOLATE SODIUM (FOLATE SODIUM) [Concomitant]
  11. LORAZEPAM [Concomitant]
  12. CELEBREX [Concomitant]
  13. FENTANYL-100 [Concomitant]
  14. VANCOMYCIN [Concomitant]
  15. RIFAMPIN [Concomitant]

REACTIONS (9)
  - ATRIAL FIBRILLATION [None]
  - CHRONIC OBSTRUCTIVE PULMONARY DISEASE [None]
  - FALL [None]
  - HYPOTENSION [None]
  - PNEUMONIA [None]
  - PULMONARY EMBOLISM [None]
  - SEPSIS [None]
  - THROMBOCYTOPENIA [None]
  - URINARY TRACT INFECTION [None]
